FAERS Safety Report 16017887 (Version 1)
Quarter: 2019Q1

REPORT INFORMATION
  Report Type: Spontaneous
  Country: US (occurrence: US)
  Receive Date: 20190228
  Receipt Date: 20190228
  Transmission Date: 20190418
  Serious: No
  Sender: FDA-Public Use
  Company Number: US-ABBVIE-18S-163-2420639-00

PATIENT
  Sex: Male

DRUGS (2)
  1. ANDROGEL [Suspect]
     Active Substance: TESTOSTERONE
     Indication: ANDROGEN DEFICIENCY
     Route: 061
     Dates: start: 2003, end: 2015
  2. ANDROGEL [Suspect]
     Active Substance: TESTOSTERONE
     Route: 061

REACTIONS (4)
  - Asthenia [Recovered/Resolved]
  - Exercise tolerance decreased [Recovered/Resolved]
  - Blood testosterone decreased [Recovered/Resolved]
  - Loss of personal independence in daily activities [Recovered/Resolved]

NARRATIVE: CASE EVENT DATE: 2015
